FAERS Safety Report 4265213-0 (Version None)
Quarter: 2004Q1

REPORT INFORMATION
  Report Type: 
  Country: None (occurrence: None)
  Receive Date: 20040106
  Receipt Date: 20040106
  Transmission Date: 20041129
  Serious: No
  Sender: FDA-Public Use
  Company Number: None

PATIENT
  Sex: Female
  Weight: 45.8133 kg

DRUGS (1)
  1. MINITRAN [Suspect]
     Dosage: 0.4 MG PATCH APPLY @ 6 PM REMOVE @ NOON

REACTIONS (1)
  - RASH [None]
